FAERS Safety Report 25408809 (Version 1)
Quarter: 2025Q2

REPORT INFORMATION
  Report Type: Other
  Country: US (occurrence: US)
  Receive Date: 20250607
  Receipt Date: 20250607
  Transmission Date: 20250717
  Serious: Yes (Hospitalization)
  Sender: ANI
  Company Number: US-ANIPHARMA-023116

PATIENT
  Age: 66 Year
  Sex: Female

DRUGS (13)
  1. LORAZEPAM [Suspect]
     Active Substance: LORAZEPAM
     Indication: Catatonia
     Route: 048
  2. HALOPERIDOL DECANOATE [Concomitant]
     Active Substance: HALOPERIDOL DECANOATE
     Indication: Bipolar disorder
     Route: 030
  3. VALPROIC ACID [Concomitant]
     Active Substance: VALPROIC ACID
     Indication: Catatonia
  4. LORAZEPAM [Suspect]
     Active Substance: LORAZEPAM
     Indication: Catatonia
  5. LORAZEPAM [Suspect]
     Active Substance: LORAZEPAM
     Indication: Bipolar disorder
  6. LORAZEPAM [Suspect]
     Active Substance: LORAZEPAM
     Indication: Schizoaffective disorder
  7. LORAZEPAM [Suspect]
     Active Substance: LORAZEPAM
     Indication: Bipolar disorder
     Route: 048
  8. LORAZEPAM [Suspect]
     Active Substance: LORAZEPAM
     Indication: Schizoaffective disorder
     Route: 048
  9. LORAZEPAM [Suspect]
     Active Substance: LORAZEPAM
     Indication: Catatonia
  10. LORAZEPAM [Suspect]
     Active Substance: LORAZEPAM
     Indication: Bipolar disorder
  11. LORAZEPAM [Suspect]
     Active Substance: LORAZEPAM
     Indication: Schizoaffective disorder
  12. HALOPERIDOL DECANOATE [Concomitant]
     Active Substance: HALOPERIDOL DECANOATE
     Indication: Psychotic disorder
     Route: 030
  13. HALOPERIDOL DECANOATE [Concomitant]
     Active Substance: HALOPERIDOL DECANOATE
     Indication: Schizoaffective disorder
     Route: 030

REACTIONS (1)
  - Treatment noncompliance [Unknown]
